FAERS Safety Report 6831008-4 (Version None)
Quarter: 2010Q3

REPORT INFORMATION
  Report Type: 
  Country: None (occurrence: None)
  Receive Date: 20100712
  Receipt Date: 20100705
  Transmission Date: 20110219
  Serious: Yes (Hospitalization)
  Sender: FDA-Public Use
  Company Number: DE-SANOFI-AVENTIS-2010SA038722

PATIENT
  Age: 32 Year
  Sex: Female

DRUGS (1)
  1. LEFLUNOMIDE [Suspect]
     Indication: RHEUMATOID ARTHRITIS
     Route: 048

REACTIONS (7)
  - ABSCESS [None]
  - APLASTIC ANAEMIA [None]
  - ECCHYMOSIS [None]
  - FATIGUE [None]
  - LUNG INFILTRATION [None]
  - PURPURA [None]
  - PYREXIA [None]
